FAERS Safety Report 11266508 (Version 1)
Quarter: 2015Q3

REPORT INFORMATION
  Report Type: Spontaneous
  Country: IT (occurrence: IT)
  Receive Date: 20150713
  Receipt Date: 20150713
  Transmission Date: 20151125
  Serious: Yes (Other)
  Sender: FDA-Public Use
  Company Number: PHHY2015IT081033

PATIENT
  Age: 40 Year
  Sex: Female
  Weight: 45 kg

DRUGS (3)
  1. EPIRUBICIN HOSPIRA [Concomitant]
     Indication: BREAST CANCER
     Dosage: 127 MG
     Route: 042
     Dates: start: 20150424, end: 20150625
  2. ENDOXAN BAXTER [Concomitant]
     Active Substance: CYCLOPHOSPHAMIDE
     Indication: BREAST CANCER
     Dosage: 846 MG
     Route: 042
     Dates: start: 20150424, end: 20150625
  3. ZARZIO [Suspect]
     Active Substance: FILGRASTIM
     Indication: COLONY STIMULATING FACTOR PROPHYLAXIS
     Dosage: 30 U, QD
     Route: 065
     Dates: start: 20150608, end: 20150612

REACTIONS (3)
  - Bone pain [Recovered/Resolved]
  - Hypotension [Recovered/Resolved]
  - Vertigo [Recovered/Resolved]

NARRATIVE: CASE EVENT DATE: 20150608
